FAERS Safety Report 24718313 (Version 2)
Quarter: 2024Q4

REPORT INFORMATION
  Report Type: Report from Study
  Country: JP (occurrence: JP)
  Receive Date: 20241210
  Receipt Date: 20241212
  Transmission Date: 20250114
  Serious: Yes (Death)
  Sender: DAIICHI
  Company Number: JP-DSJP-DS-2024-113060-JPAA

PATIENT
  Sex: Female

DRUGS (1)
  1. ENHERTU [Suspect]
     Active Substance: FAM-TRASTUZUMAB DERUXTECAN-NXKI
     Indication: HER2 low breast cancer
     Dosage: UNK
     Route: 041

REACTIONS (1)
  - Disease progression [Fatal]
